FAERS Safety Report 8918233 (Version 2)
Quarter: 2012Q4

REPORT INFORMATION
  Report Type: Report from Study
  Country: DE (occurrence: DE)
  Receive Date: 20121120
  Receipt Date: 20121130
  Transmission Date: 20130627
  Serious: Yes (Hospitalization)
  Sender: FDA-Public Use
  Company Number: DE-PFIZER INC-2012280573

PATIENT
  Age: 76 Year
  Sex: Female
  Weight: 74 kg

DRUGS (1)
  1. TEMSIROLIMUS [Suspect]
     Indication: MYELODYSPLASTIC SYNDROME
     Dosage: 20 mg, single dose
     Route: 042
     Dates: start: 20120621, end: 20121031

REACTIONS (1)
  - Febrile neutropenia [Unknown]
